FAERS Safety Report 6209931-3 (Version None)
Quarter: 2009Q2

REPORT INFORMATION
  Report Type: 
  Country: None (occurrence: None)
  Receive Date: 20090528
  Receipt Date: 20090528
  Transmission Date: 20091009
  Serious: Yes (Hospitalization)
  Sender: FDA-Public Use
  Company Number: None

PATIENT
  Sex: Male
  Weight: 24.1 kg

DRUGS (10)
  1. ONCASPAR [Suspect]
     Dosage: 2400 MG
     Dates: end: 20090503
  2. PREDNISONE [Suspect]
     Dosage: 330 MG
     Dates: end: 20090505
  3. VINCRISTINE SULFATE [Suspect]
     Dosage: 1.4 MG
     Dates: end: 20090430
  4. CYTARABINE [Suspect]
     Dosage: 70 MG
     Dates: end: 20090428
  5. DAUNORUBICIN HCL [Suspect]
     Dosage: 24 MG
     Dates: end: 20090430
  6. DIPHENHYDRAMINE HCL [Concomitant]
  7. HYDROCORTISONE [Concomitant]
  8. HYDROXYZINE [Concomitant]
  9. RANITIDINE [Concomitant]
  10. TRIMETHOPRIM + SULFAMETHOXAZOLE [Concomitant]

REACTIONS (3)
  - BLOOD BILIRUBIN INCREASED [None]
  - DRUG HYPERSENSITIVITY [None]
  - INFECTION [None]
